FAERS Safety Report 23810628 (Version 13)
Quarter: 2024Q3

REPORT INFORMATION
  Report Type: Spontaneous
  Country: PL (occurrence: PL)
  Receive Date: 20240502
  Receipt Date: 20240808
  Transmission Date: 20241016
  Serious: Yes (Hospitalization, Disabling, Other)
  Sender: MYLAN
  Company Number: None

PATIENT
  Age: 24 Year
  Sex: Male

DRUGS (48)
  1. ESCITALOPRAM [Interacting]
     Active Substance: ESCITALOPRAM OXALATE
     Indication: Depression
     Dosage: 10 MILLIGRAM, QD
     Route: 048
  2. ESCITALOPRAM [Interacting]
     Active Substance: ESCITALOPRAM OXALATE
     Indication: Insomnia
  3. TAMSULOSIN [Suspect]
     Active Substance: TAMSULOSIN
     Indication: Painful ejaculation
     Dosage: 0.4 MILLIGRAM, QD (0.4 MG, HS (SUSTAINED RELEASE) TAMSULOSIN SRPER NIGHT)
     Route: 065
  4. TAMSULOSIN [Suspect]
     Active Substance: TAMSULOSIN
     Indication: Perineal pain
  5. TAMSULOSIN [Suspect]
     Active Substance: TAMSULOSIN
     Indication: Pudendal canal syndrome
  6. MIANSERIN [Interacting]
     Active Substance: MIANSERIN
     Indication: Depression
     Dosage: 30 MILLIGRAM, QD
     Route: 048
  7. MIANSERIN [Interacting]
     Active Substance: MIANSERIN
     Indication: Insomnia
  8. MIANSERIN [Interacting]
     Active Substance: MIANSERIN
     Indication: Anxiety
  9. PREGABALIN [Suspect]
     Active Substance: PREGABALIN
     Indication: Painful ejaculation
     Dosage: 25 MILLIGRAM, QD, 25 MG, ONCE DAILY (AT BEDTIME)
     Route: 065
  10. ALPRAZOLAM [Suspect]
     Active Substance: ALPRAZOLAM
     Indication: Anxiety
     Dosage: 0.5 MILLIGRAM, QD
     Route: 065
  11. SILDENAFIL [Suspect]
     Active Substance: SILDENAFIL
     Indication: Sexual dysfunction
     Dosage: 50 MILLIGRAM, PRN (1 AS NECESSARY})
     Route: 065
  12. SILDENAFIL [Suspect]
     Active Substance: SILDENAFIL
     Indication: Painful ejaculation
     Dosage: 50 MILLIGRAM, QD BEFORE INTERCOURSE
     Route: 065
  13. SILDENAFIL [Suspect]
     Active Substance: SILDENAFIL
     Indication: Neuropathy peripheral
  14. TAMSULOSIN HYDROCHLORIDE [Suspect]
     Active Substance: TAMSULOSIN HYDROCHLORIDE
     Indication: Painful ejaculation
     Dosage: 0.4 MILLIGRAM, QD (0.4 MILLIGRAM, AT BED TIME)
     Route: 042
  15. TAMSULOSIN HYDROCHLORIDE [Suspect]
     Active Substance: TAMSULOSIN HYDROCHLORIDE
     Indication: Perineal pain
  16. TAMSULOSIN HYDROCHLORIDE [Suspect]
     Active Substance: TAMSULOSIN HYDROCHLORIDE
     Indication: Pudendal canal syndrome
  17. LEVOFLOXACIN [Interacting]
     Active Substance: LEVOFLOXACIN
     Indication: Depression
     Dosage: 500 MILLIGRAM, BID (ONCE A DAY(2 ? 500 MG))
     Route: 048
  18. LEVOFLOXACIN [Interacting]
     Active Substance: LEVOFLOXACIN
     Indication: Painful ejaculation
     Dosage: 500 MILLIGRAM, QOD
     Route: 048
  19. LEVOFLOXACIN [Interacting]
     Active Substance: LEVOFLOXACIN
     Indication: Perineal pain
  20. LIDOCAINE HYDROCHLORIDE [Suspect]
     Active Substance: LIDOCAINE HYDROCHLORIDE
     Indication: Painful ejaculation
     Dosage: UNK
     Route: 042
  21. LIDOCAINE HYDROCHLORIDE [Suspect]
     Active Substance: LIDOCAINE HYDROCHLORIDE
     Indication: Pain
  22. LIDOCAINE HYDROCHLORIDE [Suspect]
     Active Substance: LIDOCAINE HYDROCHLORIDE
     Indication: Pudendal canal syndrome
  23. LIDOCAINE [Suspect]
     Active Substance: LIDOCAINE
     Indication: Pain
     Dosage: UNK
     Route: 065
  24. LIDOCAINE [Suspect]
     Active Substance: LIDOCAINE
     Indication: Painful ejaculation
  25. LIDOCAINE [Suspect]
     Active Substance: LIDOCAINE
     Indication: Pudendal canal syndrome
  26. MAGNESIUM SULFATE [Suspect]
     Active Substance: MAGNESIUM SULFATE\MAGNESIUM SULFATE HEPTAHYDRATE
     Indication: Painful ejaculation
     Dosage: UNK
     Route: 065
  27. MAGNESIUM SULFATE [Suspect]
     Active Substance: MAGNESIUM SULFATE\MAGNESIUM SULFATE HEPTAHYDRATE
     Indication: Pain
  28. MAGNESIUM SULFATE [Suspect]
     Active Substance: MAGNESIUM SULFATE\MAGNESIUM SULFATE HEPTAHYDRATE
     Indication: Pudendal canal syndrome
  29. DICLOFENAC [Suspect]
     Active Substance: DICLOFENAC
     Indication: Painful ejaculation
     Dosage: 100 MILLIGRAM, QD (50 MILLIGRAM, TWO TIMES A DAY)
     Route: 054
  30. DICLOFENAC [Suspect]
     Active Substance: DICLOFENAC
     Dosage: 50 MILLIGRAM, QOD
     Route: 065
  31. DICLOFENAC [Suspect]
     Active Substance: DICLOFENAC
     Indication: Painful ejaculation
     Dosage: 50 MILLIGRAM, BID (50 MG, 2X PER DAY)
  32. VALPROIC ACID [Suspect]
     Active Substance: VALPROIC ACID
     Indication: Painful ejaculation
     Dosage: UNK
     Route: 065
  33. VALPROIC ACID [Suspect]
     Active Substance: VALPROIC ACID
     Indication: Pain
  34. VALPROIC ACID [Suspect]
     Active Substance: VALPROIC ACID
     Indication: Pudendal canal syndrome
  35. VALPROIC ACID [Suspect]
     Active Substance: VALPROIC ACID
     Indication: Painful ejaculation
     Dosage: UNK
     Route: 042
  36. VALPROIC ACID [Suspect]
     Active Substance: VALPROIC ACID
     Indication: Pain
  37. VALPROIC ACID [Suspect]
     Active Substance: VALPROIC ACID
     Indication: Pudendal canal syndrome
  38. CIPROFLOXACIN [Interacting]
     Active Substance: CIPROFLOXACIN
     Indication: Painful ejaculation
     Dosage: 1000 MILLIGRAM, QD
     Route: 048
  39. CIPROFLOXACIN [Interacting]
     Active Substance: CIPROFLOXACIN
     Dosage: 500 MILLIGRAM, BID
     Route: 065
  40. CIPROFLOXACIN [Interacting]
     Active Substance: CIPROFLOXACIN
     Dosage: 500 MILLIGRAM, QOD
     Route: 065
  41. METAMIZOLE [Suspect]
     Active Substance: METAMIZOLE
     Indication: Painful ejaculation
     Dosage: UNK
     Route: 065
  42. METAMIZOLE [Suspect]
     Active Substance: METAMIZOLE
     Indication: Pain
  43. MELATONIN [Concomitant]
     Active Substance: MELATONIN
     Indication: Depression
     Dosage: 2 MILLIGRAM, UNK, SUSTAINED-RELEASE
     Route: 065
  44. MELATONIN [Concomitant]
     Active Substance: MELATONIN
     Indication: Insomnia
  45. VORTIOXETINE [Concomitant]
     Active Substance: VORTIOXETINE HYDROBROMIDE
     Indication: Depression
     Dosage: 10 MILLIGRAM, UNK
     Route: 065
  46. LEVOFLOXACIN [Interacting]
     Active Substance: LEVOFLOXACIN
     Indication: Painful ejaculation
     Dosage: 1000 MILLIGRAM, QD
     Route: 065
  47. LEVOFLOXACIN [Interacting]
     Active Substance: LEVOFLOXACIN
     Indication: Perineal pain
     Dosage: 500 MILLIGRAM, BID
     Route: 048
  48. SILDENAFIL [Concomitant]
     Active Substance: SILDENAFIL
     Indication: Sexual dysfunction
     Dosage: 50 MILLIGRAM, PRN, BEFORE INTERCOURSE, AS NECESSARY
     Route: 065

REACTIONS (18)
  - Pain [Recovered/Resolved]
  - Painful ejaculation [Recovered/Resolved with Sequelae]
  - Drug interaction [Recovered/Resolved]
  - Hospitalisation [Unknown]
  - Condition aggravated [Recovering/Resolving]
  - Therapy partial responder [Unknown]
  - Perineal pain [Recovered/Resolved with Sequelae]
  - Burning sensation [Not Recovered/Not Resolved]
  - Anxiety [Unknown]
  - Drug ineffective [Unknown]
  - Groin pain [Not Recovered/Not Resolved]
  - Drug-disease interaction [Recovered/Resolved with Sequelae]
  - Therapeutic product effect incomplete [Unknown]
  - Product use in unapproved indication [Recovered/Resolved]
  - Drug ineffective for unapproved indication [Recovered/Resolved]
  - Medication error [Unknown]
  - Off label use [Unknown]
  - Product prescribing error [Unknown]
